FAERS Safety Report 8613884-8 (Version None)
Quarter: 2012Q3

REPORT INFORMATION
  Report Type: 
  Country: None (occurrence: None)
  Receive Date: 20120823
  Receipt Date: 20120810
  Transmission Date: 20120928
  Serious: Yes (Other)
  Sender: FDA-Public Use
  Company Number: US-009507513-1207USA011449

PATIENT

DRUGS (17)
  1. LIPITOR [Concomitant]
  2. TEMAZEPAM [Concomitant]
  3. MOBIC [Concomitant]
  4. POTASSIUM (UNSPECIFIED) [Concomitant]
  5. FLEXERIL [Concomitant]
  6. VICODIN [Concomitant]
  7. IMITREX [Concomitant]
  8. INDERAL [Concomitant]
  9. NAMEDIA [Concomitant]
  10. NARATRIPTAN HYDROCHLORIDE [Concomitant]
  11. SUMATRIPTAN [Concomitant]
  12. MAXALT [Suspect]
     Dosage: 10 MG, PRN
     Route: 048
     Dates: start: 20100101
  13. RECLAST [Concomitant]
  14. PRILOSEC [Concomitant]
  15. ARICEPT [Concomitant]
  16. LYRICA [Concomitant]
  17. ROZEREM [Concomitant]

REACTIONS (6)
  - RETINAL SCAR [None]
  - MIGRAINE [None]
  - ABDOMINAL DISCOMFORT [None]
  - VITRECTOMY [None]
  - MACULAR OEDEMA [None]
  - SEROTONIN SYNDROME [None]
